FAERS Safety Report 5946711-8 (Version None)
Quarter: 2008Q4

REPORT INFORMATION
  Report Type: 
  Country: None (occurrence: None)
  Receive Date: 20081110
  Receipt Date: 20080926
  Transmission Date: 20090506
  Serious: No
  Sender: FDA-Public Use
  Company Number: A0750311A

PATIENT
  Age: 79 Year
  Sex: Female

DRUGS (9)
  1. ALTABAX [Suspect]
     Route: 061
     Dates: start: 20080915
  2. SUPPLEMENT [Suspect]
     Route: 048
     Dates: start: 20080630
  3. PREDNISONE TAB [Concomitant]
  4. LEVOTHYROXINE SODIUM [Concomitant]
  5. PROVENTIL [Concomitant]
  6. PREVACID [Concomitant]
  7. SUPPLEMENT [Concomitant]
  8. FIBER SUPPLEMENT [Concomitant]
  9. UNKNOWN MEDICATION [Concomitant]

REACTIONS (4)
  - CHROMATURIA [None]
  - DRUG ADMINISTERED AT INAPPROPRIATE SITE [None]
  - OFF LABEL USE [None]
  - THERAPEUTIC RESPONSE UNEXPECTED [None]
